FAERS Safety Report 9377712 (Version 1)
Quarter: 2013Q3

REPORT INFORMATION
  Report Type: Spontaneous
  Country: US (occurrence: US)
  Receive Date: 20130701
  Receipt Date: 20130701
  Transmission Date: 20140515
  Serious: No
  Sender: FDA-Public Use
  Company Number: US-COVIDIEN/TYCO HEALTHCARE/MALLINCKRODT-T201302803

PATIENT
  Age: 7 Year
  Sex: Male
  Weight: 23.58 kg

DRUGS (2)
  1. METHYLPHENIDATE HYDROCHLORIDE EXTENDED RELEASE TABLETS [Suspect]
     Indication: ATTENTION DEFICIT/HYPERACTIVITY DISORDER
     Dosage: 36 MG, QD
     Route: 048
     Dates: start: 20130531, end: 20130602
  2. METHYLPHENIDATE [Concomitant]

REACTIONS (2)
  - Attention deficit/hyperactivity disorder [Recovered/Resolved]
  - Drug ineffective [Recovered/Resolved]
